FAERS Safety Report 8150524-9 (Version None)
Quarter: 2012Q1

REPORT INFORMATION
  Report Type: 
  Country: None (occurrence: None)
  Receive Date: 20120220
  Receipt Date: 20120216
  Transmission Date: 20120608
  Serious: Yes (Other)
  Sender: FDA-Public Use
  Company Number: US-PFIZER INC-2012042199

PATIENT
  Sex: Female

DRUGS (1)
  1. AMLODIPINE BESYLATE [Suspect]
     Dosage: 2.5 MG, UNK

REACTIONS (5)
  - HYPERTENSION [None]
  - JOINT SWELLING [None]
  - CONVULSION [None]
  - DIZZINESS [None]
  - ARTHRALGIA [None]
